FAERS Safety Report 9165629 (Version 1)
Quarter: 2013Q1

REPORT INFORMATION
  Report Type: Spontaneous
  Country: ES (occurrence: ES)
  Receive Date: 20130315
  Receipt Date: 20130315
  Transmission Date: 20140127
  Serious: Yes (Other)
  Sender: FDA-Public Use
  Company Number: ES-SANOFI-AVENTIS-2013SA023608

PATIENT
  Age: 85 Year
  Sex: Male

DRUGS (6)
  1. CLEXANE [Suspect]
     Indication: PROPHYLAXIS
     Dosage: 40MG DIA?FORM: 231
     Route: 058
     Dates: start: 20121013, end: 20121018
  2. LEVOFLOXACIN [Suspect]
     Indication: PNEUMONIA
     Dosage: 500 MG DIA?DOSE: GREATER THAN 500 MG PER DAY
     Route: 042
     Dates: start: 20121012, end: 20121015
  3. LEVOFLOXACIN [Suspect]
     Indication: PNEUMONIA
     Dosage: 250MG DIA?DOSE: GREATER THAN 250 MG PER DAY
     Route: 048
     Dates: start: 20121016, end: 20121023
  4. TENORMIN [Concomitant]
     Dosage: 25MG DIA
     Route: 048
     Dates: start: 2009
  5. COLCHICINE [Concomitant]
     Dosage: 1 UNIDAD DOSE:1 UNIT(S)
     Route: 048
     Dates: start: 2008
  6. ALLOPURINOL [Concomitant]
     Dosage: 1 CP DIA
     Route: 048
     Dates: start: 2008

REACTIONS (1)
  - Hepatitis [Recovered/Resolved]
